FAERS Safety Report 9153958 (Version 1)
Quarter: 2013Q1

REPORT INFORMATION
  Report Type: Spontaneous
  Country: US (occurrence: None)
  Receive Date: 20130306
  Receipt Date: 20130306
  Transmission Date: 20140127
  Serious: No
  Sender: FDA-Public Use
  Company Number: None

PATIENT
  Age: 3 Year
  Sex: Female
  Weight: 13.61 kg

DRUGS (4)
  1. PROPOFOL [Suspect]
     Indication: ANAESTHESIA
     Dosage: SEVERAL  HOURS?02/27/2013  --  02/27/2013
     Dates: start: 20130227, end: 20130227
  2. PROPOFOL [Suspect]
     Indication: NUCLEAR MAGNETIC RESONANCE IMAGING
     Dosage: SEVERAL  HOURS?02/27/2013  --  02/27/2013
     Dates: start: 20130227, end: 20130227
  3. IBUPROFEN [Concomitant]
  4. CLEAR FLUIDS [Concomitant]

REACTIONS (5)
  - Chills [None]
  - Pyrexia [None]
  - Pain [None]
  - Flushing [None]
  - Eye movement disorder [None]
